FAERS Safety Report 9120947 (Version 2)
Quarter: 2013Q1

REPORT INFORMATION
  Report Type: Spontaneous
  Country: ES (occurrence: ES)
  Receive Date: 20130226
  Receipt Date: 20130305
  Transmission Date: 20140127
  Serious: Yes (Other)
  Sender: FDA-Public Use
  Company Number: ES-GLAXOSMITHKLINE-B0870021A

PATIENT
  Age: 37 Year
  Sex: Male

DRUGS (3)
  1. CEFUROXIME [Suspect]
     Indication: URINARY TRACT INFECTION
     Dosage: 500MG TWICE PER DAY
     Route: 048
     Dates: start: 20120704, end: 2012
  2. PARACETAMOL [Concomitant]
     Indication: PYREXIA
     Dosage: 1G THREE TIMES PER DAY
     Route: 048
     Dates: start: 20120704
  3. IBUPROFEN [Concomitant]
     Indication: PYREXIA
     Dosage: 600MG THREE TIMES PER DAY
     Route: 048
     Dates: start: 20120704

REACTIONS (2)
  - Arthralgia [Recovered/Resolved]
  - Local swelling [Recovered/Resolved]
